FAERS Safety Report 15134062 (Version 1)
Quarter: 2018Q3

REPORT INFORMATION
  Report Type: Report from Study
  Country: AU (occurrence: AU)
  Receive Date: 20180712
  Receipt Date: 20180712
  Transmission Date: 20181010
  Serious: Yes (Life-Threatening, Hospitalization, Other)
  Sender: FDA-Public Use
  Company Number: AU-TEVA-2018-AU-921932

PATIENT
  Age: 37 Year
  Sex: Female

DRUGS (4)
  1. INSULIN [Suspect]
     Active Substance: INSULIN NOS
     Indication: CARDIOTOXICITY
     Dosage: 72 UNITS/HOUR (1 UNITS/KG/HOUR), HIGH?DOSE INSULIN EUGLYCAEMIC (HIE) THERAPY
     Route: 050
  2. VERAPAMIL [Suspect]
     Active Substance: VERAPAMIL HYDROCHLORIDE
     Indication: PRODUCT USED FOR UNKNOWN INDICATION
     Route: 048
  3. INSULIN [Suspect]
     Active Substance: INSULIN NOS
     Indication: CARDIOTOXICITY
     Dosage: BOLUS DOSE; HIGH?DOSE INSULIN EUGLYCAEMIC (HIE) THERAPY
     Route: 065
  4. IRBESARTAN. [Suspect]
     Active Substance: IRBESARTAN
     Indication: PRODUCT USED FOR UNKNOWN INDICATION
     Route: 048

REACTIONS (4)
  - Hypoglycaemia [Recovering/Resolving]
  - Hypokalaemia [Unknown]
  - Cardiotoxicity [Recovering/Resolving]
  - Overdose [Recovering/Resolving]
